FAERS Safety Report 17278914 (Version 6)
Quarter: 2022Q2

REPORT INFORMATION
  Report Type: Report from Study
  Country: FR (occurrence: FR)
  Receive Date: 20200116
  Receipt Date: 20220615
  Transmission Date: 20220721
  Serious: Yes (Hospitalization)
  Sender: FDA-Public Use
  Company Number: FR-IPSEN GROUP, RESEARCH AND DEVELOPMENT-2019-21449

PATIENT
  Age: 74 Year
  Sex: Male
  Weight: 94 kg

DRUGS (3)
  1. CABOZANTINIB [Suspect]
     Active Substance: CABOZANTINIB
     Indication: Renal cell carcinoma
     Dosage: 40 MG, QD
     Route: 048
     Dates: start: 20190916, end: 20191015
  2. CABOZANTINIB [Suspect]
     Active Substance: CABOZANTINIB
     Dosage: 50 MG, QD  (60MG 3/WEEK ON EVEN DAYS AND 40 MG ON ODD DAYS)
     Route: 048
     Dates: start: 20191016, end: 20191202
  3. CABOZANTINIB [Suspect]
     Active Substance: CABOZANTINIB
     Dosage: 60 MG, QD
     Route: 048
     Dates: start: 20191203, end: 20200106

REACTIONS (25)
  - Pancytopenia [Recovered/Resolved]
  - Stomatitis [Recovered/Resolved]
  - Arthralgia [Not Recovered/Not Resolved]
  - Oesophageal candidiasis [Recovered/Resolved]
  - Decubitus ulcer [Recovered/Resolved]
  - Herpes zoster [Recovered/Resolved]
  - Facial pain [Recovered/Resolved]
  - Neck pain [Recovered/Resolved]
  - Hyperthyroidism [Recovered/Resolved]
  - Dysgeusia [Recovered/Resolved]
  - Dysphagia [Recovered/Resolved]
  - Dyspnoea [Recovered/Resolved]
  - Asthenia [Recovered/Resolved]
  - Diarrhoea [Recovered/Resolved]
  - Decreased appetite [Recovered/Resolved]
  - Constipation [Recovered/Resolved]
  - Anaemia [Recovered/Resolved]
  - Stomatitis [Not Recovered/Not Resolved]
  - Facial asymmetry [Recovered/Resolved]
  - Dysarthria [Recovered/Resolved]
  - Ear pain [Recovered/Resolved]
  - Anxiety [Recovered/Resolved]
  - Hallucination, visual [Recovered/Resolved]
  - Confusional state [Recovered/Resolved]
  - Off label use [Unknown]

NARRATIVE: CASE EVENT DATE: 20191016
